FAERS Safety Report 16093758 (Version 1)
Quarter: 2019Q1

REPORT INFORMATION
  Report Type: Spontaneous
  Country: GB (occurrence: GB)
  Receive Date: 20190320
  Receipt Date: 20190320
  Transmission Date: 20190418
  Serious: Yes (Hospitalization, Disabling)
  Sender: FDA-Public Use
  Company Number: GB-ACCORD-114180

PATIENT
  Sex: Male
  Weight: 66 kg

DRUGS (2)
  1. CLOZAPINE. [Suspect]
     Active Substance: CLOZAPINE
     Indication: PRODUCT USED FOR UNKNOWN INDICATION
     Route: 048
     Dates: start: 19980601
  2. PROCYCLIDINE [Concomitant]
     Active Substance: PROCYCLIDINE
     Route: 048
     Dates: start: 199807

REACTIONS (6)
  - Constipation [Recovered/Resolved]
  - Somnolence [Recovered/Resolved]
  - Vomiting [Recovered/Resolved]
  - Abnormal loss of weight [Recovered/Resolved]
  - Dyspepsia [Recovered/Resolved]
  - Eating disorder [Recovered/Resolved]
